FAERS Safety Report 5045122-X (Version None)
Quarter: 2006Q3

REPORT INFORMATION
  Report Type: 
  Country: None (occurrence: None)
  Receive Date: 20060705
  Receipt Date: 20060626
  Transmission Date: 20061208
  Serious: Yes (Other)
  Sender: FDA-Public Use
  Company Number: 2006BI007614

PATIENT
  Age: 62 Year
  Sex: Female
  Weight: 72.5755 kg

DRUGS (6)
  1. AVONEX [Suspect]
     Indication: MULTIPLE SCLEROSIS
     Dosage: 30 UG;QW;IM
     Route: 030
     Dates: start: 20040801
  2. LIBRAX [Concomitant]
  3. LEVOXYL [Concomitant]
  4. ACIPHEX [Concomitant]
  5. ESTRACE [Concomitant]
  6. METOCLOPRAMIDE [Concomitant]

REACTIONS (3)
  - BREAST CANCER FEMALE [None]
  - CALCINOSIS [None]
  - OSTEITIS DEFORMANS [None]
